FAERS Safety Report 9433733 (Version 1)
Quarter: 2013Q3

REPORT INFORMATION
  Report Type: Not Available
  Country: GB (occurrence: GB)
  Receive Date: 20130731
  Receipt Date: 20130731
  Transmission Date: 20140515
  Serious: Yes (Other)
  Sender: FDA-Public Use
  Company Number: GB-RB-056552-13

PATIENT
  Age: 56 Year
  Sex: Female
  Weight: 65 kg

DRUGS (8)
  1. BUPRENORPHINE (PATCH) [Suspect]
     Indication: BACK PAIN
     Route: 062
     Dates: start: 20130208, end: 20130311
  2. BUPRENORPHINE (PATCH) [Suspect]
     Route: 062
     Dates: start: 20130311, end: 20130613
  3. AMITRIPTYLINE [Concomitant]
     Indication: BACK PAIN
     Dosage: DOSING DETAILS UNKNOWN
     Route: 048
     Dates: start: 20130208, end: 20130626
  4. AMITRIPTYLINE [Concomitant]
     Indication: SCIATICA
     Dosage: DOSING DETAILS UNKNOWN
     Route: 048
     Dates: start: 20130208, end: 20130626
  5. GABAPENTIN [Concomitant]
     Indication: BACK PAIN
     Route: 048
     Dates: start: 20130402, end: 20130626
  6. GABAPENTIN [Concomitant]
     Indication: SCIATICA
     Route: 048
     Dates: start: 20130402, end: 20130626
  7. PARACETAMOL [Concomitant]
     Indication: BACK PAIN
     Dosage: TAKING AS NECESSARY
     Route: 048
     Dates: start: 20130208
  8. PARACETAMOL [Concomitant]
     Indication: SCIATICA
     Dosage: TAKING AS NECESSARY
     Route: 048
     Dates: start: 20130208

REACTIONS (3)
  - Hypoaesthesia [Recovered/Resolved]
  - Pain [Recovered/Resolved]
  - Paraesthesia [Recovered/Resolved]
